FAERS Safety Report 23450202 (Version 1)
Quarter: 2024Q1

REPORT INFORMATION
  Report Type: Spontaneous
  Country: IN (occurrence: None)
  Receive Date: 20240129
  Receipt Date: 20240129
  Transmission Date: 20240409
  Serious: Yes (Death)
  Sender: FDA-Public Use
  Company Number: IN-ROCHE-3500018

PATIENT
  Age: 78 Year
  Sex: Male

DRUGS (1)
  1. KADCYLA [Suspect]
     Active Substance: ADO-TRASTUZUMAB EMTANSINE
     Indication: Gastric cancer
     Route: 042
     Dates: start: 20230729

REACTIONS (1)
  - Death [Fatal]

NARRATIVE: CASE EVENT DATE: 20240116
